FAERS Safety Report 6000332-X (Version None)
Quarter: 2008Q4

REPORT INFORMATION
  Report Type: 
  Country: None (occurrence: None)
  Receive Date: 20081211
  Receipt Date: 20081211
  Transmission Date: 20090506
  Serious: Yes (Hospitalization)
  Sender: FDA-Public Use
  Company Number: None

PATIENT
  Sex: Male
  Weight: 50.27 kg

DRUGS (4)
  1. FLUOROURACIL [Suspect]
     Dosage: 2142 MG
  2. CISPLATIN [Suspect]
     Dosage: 91.8 MG
  3. ERBITUX [Suspect]
     Dosage: 612 MG
  4. ELLENCE [Suspect]
     Dosage: 76.5 MG

REACTIONS (1)
  - BLOOD CREATININE ABNORMAL [None]
